FAERS Safety Report 5716757-3 (Version None)
Quarter: 2008Q2

REPORT INFORMATION
  Report Type: 
  Country: None (occurrence: None)
  Receive Date: 20080424
  Receipt Date: 20070813
  Transmission Date: 20081010
  Serious: No
  Sender: FDA-Public Use
  Company Number: US-BAYER-200711856BWH

PATIENT
  Age: 87 Year
  Sex: Male

DRUGS (13)
  1. LEVITRA [Suspect]
     Indication: ERECTILE DYSFUNCTION
     Dosage: TOTAL DAILY DOSE: 20 MG  UNIT DOSE: 20 MG
     Route: 048
     Dates: start: 20070613
  2. MULTI-VITAMIN [Concomitant]
  3. GLUCOVANCE [Concomitant]
  4. ACTOS [Concomitant]
  5. ASPIRIN [Concomitant]
     Dosage: UNIT DOSE: 81 MG
  6. TOPROL-XL [Concomitant]
  7. CONQUER HA [Concomitant]
  8. DIOVAN [Concomitant]
  9. JANUVIA [Concomitant]
  10. SYNTHROID [Concomitant]
  11. TARKA 2 [Concomitant]
  12. ZOCOR [Concomitant]
  13. AVODART [Concomitant]

REACTIONS (1)
  - ERECTILE DYSFUNCTION [None]
